FAERS Safety Report 9519128 (Version 1)
Quarter: 2013Q3

REPORT INFORMATION
  Report Type: Spontaneous
  Country: US (occurrence: None)
  Receive Date: 20130911
  Receipt Date: 20130911
  Transmission Date: 20140515
  Serious: Yes (Other)
  Sender: FDA-Public Use
  Company Number: None

PATIENT
  Age: 73 Year
  Sex: Female
  Weight: 68.49 kg

DRUGS (2)
  1. BELVIQ [Suspect]
     Indication: WEIGHT INCREASED
     Route: 048
     Dates: start: 20130830, end: 20130906
  2. BELVIQ [Suspect]
     Indication: INCREASED APPETITE
     Route: 048
     Dates: start: 20130830, end: 20130906

REACTIONS (11)
  - Fatigue [None]
  - Asthenia [None]
  - Abasia [None]
  - Balance disorder [None]
  - Dysphonia [None]
  - Fear [None]
  - Dry mouth [None]
  - Polydipsia [None]
  - Impaired driving ability [None]
  - Blood glucose decreased [None]
  - Hypophagia [None]
